FAERS Safety Report 9061527 (Version 1)
Quarter: 2013Q1

REPORT INFORMATION
  Report Type: Spontaneous
  Country: US (occurrence: None)
  Receive Date: 20130208
  Receipt Date: 20130208
  Transmission Date: 20140127
  Serious: Yes (Hospitalization)
  Sender: FDA-Public Use
  Company Number: None

PATIENT
  Age: 73 Year
  Sex: Female
  Weight: 81.8 kg

DRUGS (1)
  1. PACLITAXEL 30MG HOSPIRA [Suspect]
     Indication: OVARIAN CANCER
     Route: 041
     Dates: start: 20130122, end: 20130122

REACTIONS (4)
  - Convulsion [None]
  - Dyskinesia [None]
  - Hyperhidrosis [None]
  - Back pain [None]
